FAERS Safety Report 13495330 (Version 1)
Quarter: 2017Q2

REPORT INFORMATION
  Report Type: Spontaneous
  Country: US (occurrence: US)
  Receive Date: 20170427
  Receipt Date: 20170427
  Transmission Date: 20170830
  Serious: Yes (Disabling)
  Sender: FDA-Public Use
  Company Number: None

PATIENT
  Age: 64 Year
  Sex: Female
  Weight: 81 kg

DRUGS (7)
  1. COQ10 [Concomitant]
     Active Substance: UBIDECARENONE
  2. VITAMIN B12 [Concomitant]
     Active Substance: CYANOCOBALAMIN
  3. BIEST [Concomitant]
     Active Substance: ESTRADIOL\ESTRIOL
  4. PRESERVISION [Concomitant]
     Active Substance: MINERALS\VITAMINS
  5. FISH OIL WITH VITAMIN D [Concomitant]
  6. PROGESTERONE. [Concomitant]
     Active Substance: PROGESTERONE
  7. CIPROFLOXACIN. [Suspect]
     Active Substance: CIPROFLOXACIN
     Indication: CYSTITIS
     Dosage: ?          QUANTITY:1 TABLET(S);?
     Route: 048
     Dates: start: 20160118, end: 20160121

REACTIONS (5)
  - Contusion [None]
  - Cataract [None]
  - Myalgia [None]
  - Paraesthesia [None]
  - Hypoaesthesia [None]

NARRATIVE: CASE EVENT DATE: 20160118
